FAERS Safety Report 8310439-X (Version None)
Quarter: 2012Q2

REPORT INFORMATION
  Report Type: 
  Country: None (occurrence: None)
  Receive Date: 20120425
  Receipt Date: 20120420
  Transmission Date: 20120825
  Serious: Yes (Death, Other)
  Sender: FDA-Public Use
  Company Number: GB-ROCHE-1014719

PATIENT
  Sex: Female
  Weight: 58.067 kg

DRUGS (13)
  1. LUCENTIS [Suspect]
     Indication: AGE-RELATED MACULAR DEGENERATION
     Route: 050
     Dates: start: 20090409
  2. LUCENTIS [Suspect]
     Route: 050
     Dates: start: 20100401
  3. AMLODIPINE [Concomitant]
     Dates: start: 20100401
  4. ADCAL [Concomitant]
     Dates: start: 20040801
  5. NITROGLYCERIN [Concomitant]
  6. OMEPRAZOLE [Concomitant]
  7. PREDNISOLONE [Concomitant]
  8. LUCENTIS [Suspect]
     Route: 050
     Dates: start: 20090915
  9. LUCENTIS [Suspect]
     Route: 050
     Dates: start: 20090507
  10. LUCENTIS [Suspect]
     Route: 050
     Dates: start: 20090611
  11. ISMN [Concomitant]
  12. SIMVASTATIN [Concomitant]
  13. BISOPROLOL FUMARATE [Concomitant]
     Dates: start: 20100301

REACTIONS (3)
  - ANGINA PECTORIS [None]
  - ACUTE MYOCARDIAL INFARCTION [None]
  - HYPERTENSION [None]
